FAERS Safety Report 9357290 (Version 4)
Quarter: 2014Q2

REPORT INFORMATION
  Report Type: Spontaneous
  Country: US (occurrence: US)
  Receive Date: 20130620
  Receipt Date: 20140625
  Transmission Date: 20141212
  Serious: Yes (Other)
  Sender: FDA-Public Use
  Company Number: US-BAYER-2013-073406

PATIENT
  Age: 26 Year
  Sex: Female
  Weight: 78 kg

DRUGS (3)
  1. MIRENA [Suspect]
     Indication: CONTRACEPTION
     Dosage: 20 MCG/24HR, CONT
     Route: 015
     Dates: start: 20110812, end: 20120225
  2. ALBUTEROL INHALER [Concomitant]
  3. OVCON [Concomitant]

REACTIONS (7)
  - Uterine perforation [Not Recovered/Not Resolved]
  - Genital haemorrhage [None]
  - Injury [Not Recovered/Not Resolved]
  - Pain [Not Recovered/Not Resolved]
  - Device dislocation [Not Recovered/Not Resolved]
  - Medical device pain [None]
  - Medical device discomfort [Not Recovered/Not Resolved]
